FAERS Safety Report 16587658 (Version 1)
Quarter: 2019Q3

REPORT INFORMATION
  Report Type: Spontaneous
  Country: US (occurrence: US)
  Receive Date: 20190717
  Receipt Date: 20190717
  Transmission Date: 20191004
  Serious: No
  Sender: FDA-Public Use
  Company Number: US-JNJFOC-20190719729

PATIENT
  Age: 52 Year
  Sex: Male
  Weight: 100.33 kg

DRUGS (2)
  1. DARZALEX [Suspect]
     Active Substance: DARATUMUMAB
     Indication: PRODUCT USED FOR UNKNOWN INDICATION
     Dosage: INITIAL INFUSION
     Route: 042
     Dates: start: 20190708, end: 20190708
  2. DARZALEX [Suspect]
     Active Substance: DARATUMUMAB
     Dosage: VIAL
     Route: 042

REACTIONS (5)
  - Pharyngeal disorder [Unknown]
  - Infusion related reaction [Unknown]
  - Cough [Unknown]
  - Nasal congestion [Unknown]
  - Lacrimation increased [Unknown]

NARRATIVE: CASE EVENT DATE: 20190708
